FAERS Safety Report 10103895 (Version 2)
Quarter: 2014Q3

REPORT INFORMATION
  Report Type: Other
  Country: US (occurrence: US)
  Receive Date: 20140424
  Receipt Date: 20140723
  Transmission Date: 20150326
  Serious: Yes (Death, Other)
  Sender: FDA-Public Use
  Company Number: US-GSKPPD-2014GSK001468

PATIENT
  Age: 73 Year
  Sex: Male
  Weight: 102.6 kg

DRUGS (3)
  1. AVANDIA [Suspect]
     Active Substance: ROSIGLITAZONE MALEATE
     Indication: DIABETES MELLITUS
     Route: 048
     Dates: start: 2005
  2. NITROGLYCERINE [Concomitant]
     Active Substance: NITROGLYCERIN
  3. MAXZIDE [Concomitant]
     Active Substance: HYDROCHLOROTHIAZIDE\TRIAMTERENE

REACTIONS (2)
  - Coronary artery disease [None]
  - Death [Fatal]

NARRATIVE: CASE EVENT DATE: 20050203
